FAERS Safety Report 11707577 (Version 1)
Quarter: 2015Q4

REPORT INFORMATION
  Report Type: Report from Study
  Country: US (occurrence: US)
  Receive Date: 20151106
  Receipt Date: 20151106
  Transmission Date: 20160304
  Serious: Yes (Hospitalization)
  Sender: FDA-Public Use
  Company Number: US-GILEAD-2015-0180489

PATIENT
  Age: 64 Year
  Sex: Female

DRUGS (2)
  1. IMBRUVICA [Concomitant]
     Active Substance: IBRUTINIB
     Indication: MANTLE CELL LYMPHOMA
     Dosage: UNK
     Route: 048
     Dates: start: 201501
  2. IDELALISIB [Suspect]
     Active Substance: IDELALISIB
     Indication: MANTLE CELL LYMPHOMA
     Dosage: 150 MG, UNK
     Route: 048
     Dates: start: 20150909, end: 20151026

REACTIONS (3)
  - Lung disorder [Unknown]
  - Vomiting [Unknown]
  - Dyspnoea [Unknown]

NARRATIVE: CASE EVENT DATE: 20151026
